FAERS Safety Report 12270360 (Version 1)
Quarter: 2016Q2

REPORT INFORMATION
  Report Type: Spontaneous
  Country: US (occurrence: None)
  Receive Date: 20160414
  Receipt Date: 20160414
  Transmission Date: 20160815
  Serious: Yes (Life-Threatening, Hospitalization)
  Sender: FDA-Public Use
  Company Number: None

PATIENT
  Age: 50 Year
  Sex: Female
  Weight: 66.2 kg

DRUGS (1)
  1. ESTROGEN, 1.25 MG [Suspect]
     Active Substance: ESTROGENS
     Route: 048

REACTIONS (7)
  - Migraine [None]
  - Lipids increased [None]
  - Dizziness [None]
  - Conversion disorder [None]
  - Somatic symptom disorder [None]
  - Hemiparesis [None]
  - Blood pressure increased [None]

NARRATIVE: CASE EVENT DATE: 20160113
